FAERS Safety Report 25089356 (Version 2)
Quarter: 2025Q1

REPORT INFORMATION
  Report Type: Spontaneous
  Country: US (occurrence: None)
  Receive Date: 20250318
  Receipt Date: 20250327
  Transmission Date: 20250408
  Serious: Yes (Other)
  Sender: MDD OPERATIONS
  Company Number: US-MDD US Operations-MDD202503-000795

PATIENT
  Age: 61 Year
  Sex: Male

DRUGS (8)
  1. APOKYN [Suspect]
     Active Substance: APOMORPHINE HYDROCHLORIDE
     Indication: Parkinson^s disease
     Route: 058
     Dates: start: 20250306
  2. ARMOUR THYROID [Concomitant]
     Active Substance: THYROID, PORCINE
  3. ALPRAZOLAM [Concomitant]
     Active Substance: ALPRAZOLAM
  4. TRAZODONE HYDROCHLORIDE [Concomitant]
     Active Substance: TRAZODONE HYDROCHLORIDE
  5. SERTRALINE HYDROCHLORIDE [Concomitant]
     Active Substance: SERTRALINE HYDROCHLORIDE
  6. ROSUVASTATIN CALCIUM [Concomitant]
     Active Substance: ROSUVASTATIN CALCIUM
  7. HYDROCHLOROTHIAZIDE\LOSARTAN [Concomitant]
     Active Substance: HYDROCHLOROTHIAZIDE\LOSARTAN
  8. RYTARY [Concomitant]
     Active Substance: CARBIDOPA\LEVODOPA

REACTIONS (5)
  - Loss of consciousness [Recovered/Resolved]
  - Pupil fixed [Unknown]
  - Pallor [Unknown]
  - Nausea [Unknown]
  - Hyperhidrosis [Unknown]

NARRATIVE: CASE EVENT DATE: 20250306
